FAERS Safety Report 13489525 (Version 2)
Quarter: 2018Q3

REPORT INFORMATION
  Report Type: Spontaneous
  Country: FR (occurrence: FR)
  Receive Date: 20170427
  Receipt Date: 20180914
  Transmission Date: 20181010
  Serious: Yes (Life-Threatening)
  Sender: FDA-Public Use
  Company Number: FR-PFIZER INC-2017182374

PATIENT
  Age: 45 Year
  Sex: Male

DRUGS (8)
  1. PROPOFOL. [Concomitant]
     Active Substance: PROPOFOL
     Indication: ANAESTHESIA
     Dosage: UNK, SINGLE
     Route: 042
     Dates: start: 20170412, end: 20170412
  2. KETAMINE RENAUDIN [Concomitant]
     Active Substance: KETAMINE
     Indication: ANAESTHESIA
     Dosage: 20 MG, SINGLE
     Route: 042
     Dates: start: 20170412, end: 20170412
  3. REMIFENTANIL MYLAN [Concomitant]
     Active Substance: REMIFENTANIL
     Indication: ANAESTHESIA
     Dosage: UNK, SINGLE
     Route: 042
     Dates: start: 20170412, end: 20170412
  4. ROPIVACAINE KABI [Concomitant]
     Active Substance: ROPIVACAINE
     Indication: ANAESTHESIA
     Dosage: 150 MG, SINGLE
     Route: 042
     Dates: start: 20170412, end: 20170412
  5. ATRACURIUM BESILATE [Suspect]
     Active Substance: ATRACURIUM BESYLATE
     Indication: ANAESTHESIA
     Dosage: 50 MG, SINGLE
     Route: 042
     Dates: start: 20170412, end: 20170412
  6. DALACINE [CLINDAMYCIN PHOSPHATE] [Concomitant]
     Indication: PROPHYLAXIS
     Dosage: 600 MG, SINGLE
     Route: 042
     Dates: start: 20170412, end: 20170412
  7. GENTAMICINE PANPHARMA [Concomitant]
     Active Substance: GENTAMICIN
     Indication: PROPHYLAXIS
     Dosage: 400 MG, SINGLE
     Route: 042
     Dates: start: 20170412, end: 20170412
  8. MIDAZOLAM [Concomitant]
     Active Substance: MIDAZOLAM HYDROCHLORIDE
     Indication: ANAESTHESIA
     Dosage: 2 MG, SINGLE
     Route: 042
     Dates: start: 20170412, end: 20170412

REACTIONS (1)
  - Anaphylactic shock [Recovered/Resolved]

NARRATIVE: CASE EVENT DATE: 20170412
